FAERS Safety Report 13728140 (Version 2)
Quarter: 2017Q3

REPORT INFORMATION
  Report Type: Spontaneous
  Country: US (occurrence: US)
  Receive Date: 20170707
  Receipt Date: 20170808
  Transmission Date: 20171127
  Serious: Yes (Other)
  Sender: FDA-Public Use
  Company Number: US-AUROBINDO-AUR-APL-2017-36574

PATIENT
  Age: 27 Year
  Sex: Female

DRUGS (1)
  1. ACETAMINOPHEN. [Suspect]
     Active Substance: ACETAMINOPHEN
     Indication: PRODUCT USED FOR UNKNOWN INDICATION
     Dosage: UNK
     Route: 048

REACTIONS (10)
  - Hepatocellular injury [Unknown]
  - Alanine aminotransferase increased [Unknown]
  - Aspartate aminotransferase increased [Unknown]
  - Uterine contractions abnormal [Recovered/Resolved]
  - Maternal exposure during pregnancy [Unknown]
  - Abdominal pain [Unknown]
  - Premature separation of placenta [Unknown]
  - Coagulopathy [Unknown]
  - Accidental overdose [Unknown]
  - Toxicity to various agents [Unknown]
